FAERS Safety Report 5070195-8 (Version None)
Quarter: 2006Q3

REPORT INFORMATION
  Report Type: 
  Country: None (occurrence: None)
  Receive Date: 20060714
  Receipt Date: 20060406
  Transmission Date: 20061208
  Serious: No
  Sender: FDA-Public Use
  Company Number: 2006SP001607

PATIENT
  Age: 51 Year
  Sex: Male
  Weight: 90.7194 kg

DRUGS (12)
  1. LUNESTA [Suspect]
     Indication: POOR QUALITY SLEEP
     Dosage: 3 MG;HS;ORAL
     Route: 048
     Dates: start: 20060206, end: 20060220
  2. LOPRESSOR [Concomitant]
  3. CLORAZEPATE [Concomitant]
  4. EFFEXOR [Concomitant]
  5. ASPIRIN [Concomitant]
  6. CALCIUM GLUCONATE [Concomitant]
  7. LOPRESSOR [Concomitant]
  8. ATORVASTATIN CALCIUM [Concomitant]
  9. DIPHENHYDRAMINE [Concomitant]
  10. NASACORT [Concomitant]
  11. TIMOLOL MALEATE [Concomitant]
  12. VITAMINS [Concomitant]

REACTIONS (2)
  - DRUG INEFFECTIVE [None]
  - INSOMNIA [None]
